FAERS Safety Report 15645671 (Version 1)
Quarter: 2018Q4

REPORT INFORMATION
  Report Type: Spontaneous
  Country: US (occurrence: US)
  Receive Date: 20181121
  Receipt Date: 20181121
  Transmission Date: 20190205
  Serious: No
  Sender: FDA-Public Use
  Company Number: US-NEUROCRINE BIOSCIENCES INC.-2018NBI03296

PATIENT
  Sex: Female

DRUGS (7)
  1. VIIBRYD [Concomitant]
     Active Substance: VILAZODONE HYDROCHLORIDE
  2. INGREZZA [Suspect]
     Active Substance: VALBENAZINE
     Indication: TARDIVE DYSKINESIA
     Dates: start: 201806, end: 201807
  3. INGREZZA [Suspect]
     Active Substance: VALBENAZINE
     Dates: start: 201811
  4. A THYROID MEDICATION [Concomitant]
  5. INGREZZA [Suspect]
     Active Substance: VALBENAZINE
     Dates: start: 201807, end: 201807
  6. ESTROGEN [Concomitant]
     Active Substance: ESTROGENS
  7. TRAZODONE [Concomitant]
     Active Substance: TRAZODONE HYDROCHLORIDE

REACTIONS (1)
  - Tardive dyskinesia [Unknown]

NARRATIVE: CASE EVENT DATE: 2018
